FAERS Safety Report 9830565 (Version 1)
Quarter: 2014Q1

REPORT INFORMATION
  Report Type: Spontaneous
  Country: US (occurrence: US)
  Receive Date: 20140120
  Receipt Date: 20140120
  Transmission Date: 20141002
  Serious: No
  Sender: FDA-Public Use
  Company Number: US-GILEAD-2011-0042710

PATIENT
  Sex: Male

DRUGS (1)
  1. CAYSTON [Suspect]
     Indication: PSEUDOMONAS INFECTION

REACTIONS (4)
  - Heart rate increased [Unknown]
  - Unevaluable event [Unknown]
  - Pyrexia [Unknown]
  - Oropharyngeal pain [Unknown]
